FAERS Safety Report 4331613-3 (Version None)
Quarter: 2004Q1

REPORT INFORMATION
  Report Type: 
  Country: None (occurrence: None)
  Receive Date: 20040329
  Receipt Date: 20040316
  Transmission Date: 20041129
  Serious: No
  Sender: FDA-Public Use
  Company Number: 2004UW05048

PATIENT
  Age: 45 Year
  Sex: Female
  Weight: 53.5244 kg

DRUGS (10)
  1. XYLOCAINE W/ EPINEPHRINE [Suspect]
     Indication: LOCAL ANAESTHESIA
     Dosage: 52 ML
     Dates: start: 20031231, end: 20031231
  2. SYNTHROID [Concomitant]
  3. WELLBUTRIN [Concomitant]
  4. PREMARIN [Concomitant]
  5. MARCAINE WITH EPINEPHRINE [Concomitant]
  6. VERSED [Concomitant]
  7. DILAUDID [Concomitant]
  8. PHENERGAN [Concomitant]
  9. REGLAN [Concomitant]
  10. LACTATED RINGER'S [Concomitant]

REACTIONS (4)
  - ANAESTHETIC COMPLICATION [None]
  - BLOOD PRESSURE DECREASED [None]
  - BLOOD PRESSURE INCREASED [None]
  - BRADYCARDIA [None]
